FAERS Safety Report 18066847 (Version 2)
Quarter: 2020Q3

REPORT INFORMATION
  Report Type: Spontaneous
  Country: US (occurrence: US)
  Receive Date: 20200724
  Receipt Date: 20200729
  Transmission Date: 20201103
  Serious: No
  Sender: FDA-Public Use
  Company Number: US-PFIZER INC-2020282478

PATIENT
  Age: 74 Year
  Sex: Female
  Weight: 49 kg

DRUGS (2)
  1. METHOTREXATE SODIUM. [Suspect]
     Active Substance: METHOTREXATE SODIUM
     Indication: SYNOVITIS
  2. METHOTREXATE SODIUM. [Suspect]
     Active Substance: METHOTREXATE SODIUM
     Indication: POLYMYALGIA RHEUMATICA
     Dosage: UNK
     Dates: start: 20191007, end: 2020

REACTIONS (5)
  - Off label use [Unknown]
  - Condition aggravated [Recovering/Resolving]
  - Mouth ulceration [Recovering/Resolving]
  - Drug ineffective for unapproved indication [Unknown]
  - Drug intolerance [Recovering/Resolving]
